FAERS Safety Report 8735809 (Version 4)
Quarter: 2012Q4

REPORT INFORMATION
  Report Type: 
  Country: JP (occurrence: JP)
  Receive Date: 20120822
  Receipt Date: 20121003
  Transmission Date: 20130627
  Serious: Yes (Hospitalization, Other)
  Sender: FDA-Public Use
  Company Number: JP-UCBSA-063778

PATIENT
  Age: 14 Year
  Sex: Male
  Weight: 21.7 kg

DRUGS (11)
  1. E KEPPRA [Suspect]
     Indication: EPILEPSY
     Route: 048
     Dates: start: 20111222, end: 20111227
  2. E KEPPRA [Suspect]
     Indication: EPILEPSY
     Route: 048
     Dates: start: 20111228, end: 20120117
  3. E KEPPRA [Suspect]
     Indication: EPILEPSY
     Route: 048
     Dates: start: 20120118, end: 20120220
  4. E KEPPRA [Suspect]
     Indication: EPILEPSY
     Route: 048
     Dates: start: 20120221
  5. CLOBAZAM [Suspect]
     Indication: EPILEPSY
     Route: 048
     Dates: start: 20060926
  6. TOPINA [Suspect]
     Indication: EPILEPSY
     Route: 048
     Dates: start: 20080708, end: 20120302
  7. DIAZEPAM [Suspect]
     Indication: STATUS EPILEPTICUS
     Dosage: 6 MG AS NEEDED
     Route: 054
  8. HYSERENIN [Concomitant]
     Indication: EPILEPSY
     Dosage: DAILY DOSE : 640 MG
     Route: 048
     Dates: start: 199908
  9. PHENOBAL [Concomitant]
     Indication: EPILEPSY
     Dosage: DAILY DOSE  :80 MG
     Route: 048
     Dates: start: 20070803
  10. MUCOSAL [Concomitant]
     Indication: PRODUCTIVE COUGH
     Dosage: DAILY DOSE : 1 MG
     Route: 048
     Dates: start: 1999
  11. MAGNESIUM OXIDE [Concomitant]
     Indication: CONSTIPATION
     Dosage: DAILY DOSE  : 0.5 mg
     Route: 048
     Dates: start: 1999

REACTIONS (7)
  - Pneumonia aspiration [Recovered/Resolved]
  - Somnolence [Recovering/Resolving]
  - Respiratory depression [Recovering/Resolving]
  - Muscular weakness [Recovering/Resolving]
  - Blood pressure decreased [Recovering/Resolving]
  - Oliguria [Recovering/Resolving]
  - Aspartate aminotransferase increased [None]
